FAERS Safety Report 9726590 (Version 2)
Quarter: 2014Q1

REPORT INFORMATION
  Report Type: Report from Study
  Country: JP (occurrence: JP)
  Receive Date: 20131203
  Receipt Date: 20140224
  Transmission Date: 20141002
  Serious: No
  Sender: FDA-Public Use
  Company Number: JP-GLAXOSMITHKLINE-B0948499A

PATIENT
  Sex: Female

DRUGS (4)
  1. TYKERB [Suspect]
     Indication: BREAST CANCER
     Route: 048
     Dates: end: 20140115
  2. XELODA [Suspect]
     Indication: BREAST CANCER
     Route: 048
     Dates: end: 20140115
  3. NEODOPASTON [Concomitant]
     Indication: PARKINSON^S DISEASE
     Route: 048
     Dates: end: 20140115
  4. ARICEPT [Concomitant]
     Indication: DEMENTIA
     Route: 048
     Dates: end: 20140115

REACTIONS (1)
  - No adverse event [Unknown]
